FAERS Safety Report 5689259-0 (Version None)
Quarter: 2008Q1

REPORT INFORMATION
  Report Type: 
  Country: None (occurrence: None)
  Receive Date: 20080331
  Receipt Date: 20080318
  Transmission Date: 20080703
  Serious: Yes (Hospitalization)
  Sender: FDA-Public Use
  Company Number: US-ELI_LILLY_AND_COMPANY-US200802006700

PATIENT
  Sex: Female

DRUGS (10)
  1. FORTEO [Suspect]
     Dosage: 20 UG, DAILY (1/D)
     Dates: start: 20080123, end: 20080124
  2. FORTEO [Suspect]
     Dates: start: 20080201
  3. LORTAB [Concomitant]
     Indication: SPINAL FRACTURE
     Dates: start: 20080101
  4. LORTAB [Concomitant]
     Dosage: 1 - 2 EVERY 6 HOURS PRN
  5. MOBIC [Concomitant]
     Dosage: 15 MG, DAILY (1/D)
  6. CARTIA XT [Concomitant]
     Dosage: 240 MG, DAILY (1/D)
  7. ENALAPRIL MALEATE [Concomitant]
     Dosage: 20 MG, DAILY (1/D)
  8. CALCIUM [Concomitant]
  9. VITAMIN D [Concomitant]
  10. CALCIUM W/VITAMIN D NOS [Concomitant]

REACTIONS (6)
  - GAIT DISTURBANCE [None]
  - HYPONATRAEMIA [None]
  - LIVER FUNCTION TEST ABNORMAL [None]
  - PLEURAL EFFUSION [None]
  - SMALL INTESTINAL OBSTRUCTION [None]
  - SPINAL COMPRESSION FRACTURE [None]
